FAERS Safety Report 11934851 (Version 1)
Quarter: 2016Q1

REPORT INFORMATION
  Report Type: Spontaneous
  Country: FR (occurrence: FR)
  Receive Date: 20160121
  Receipt Date: 20160121
  Transmission Date: 20160526
  Serious: Yes (Hospitalization)
  Sender: FDA-Public Use
  Company Number: PHHY2016FR005401

PATIENT
  Age: 46 Year
  Sex: Male

DRUGS (1)
  1. REVOLADE [Suspect]
     Active Substance: ELTROMBOPAG
     Indication: BONE MARROW FAILURE
     Dosage: 50 MG, TID
     Route: 065
     Dates: start: 201510

REACTIONS (2)
  - Pulmonary sepsis [Not Recovered/Not Resolved]
  - General physical health deterioration [Not Recovered/Not Resolved]
